FAERS Safety Report 9693778 (Version 2)
Quarter: 2014Q1

REPORT INFORMATION
  Report Type: Spontaneous
  Country: US (occurrence: US)
  Receive Date: 20131118
  Receipt Date: 20140106
  Transmission Date: 20141002
  Serious: Yes (Disabling, Other)
  Sender: FDA-Public Use
  Company Number: US-PFIZER INC-2013326782

PATIENT
  Age: 68 Year
  Sex: Female
  Weight: 73.47 kg

DRUGS (1)
  1. CELEBREX [Suspect]
     Dosage: UNK

REACTIONS (3)
  - Cardiovascular disorder [Unknown]
  - Cervical spinal stenosis [Unknown]
  - Muscle spasms [Unknown]
